FAERS Safety Report 5781147-4 (Version None)
Quarter: 2008Q2

REPORT INFORMATION
  Report Type: 
  Country: None (occurrence: None)
  Receive Date: 20080618
  Receipt Date: 20080605
  Transmission Date: 20081010
  Serious: Yes (Hospitalization)
  Sender: FDA-Public Use
  Company Number: 028945

PATIENT
  Age: 34 Year
  Sex: Male

DRUGS (4)
  1. ADDERALL 10 [Suspect]
     Indication: ATTENTION DEFICIT/HYPERACTIVITY DISORDER
     Dosage: 20 MG, QDF, ORAL; 40 MG/DAY, ORAL; 60 MG/DAY, ORAL; 80 MG/DAY, OAL
     Route: 048
  2. ADDERALL 10 [Suspect]
     Indication: ATTENTION DEFICIT/HYPERACTIVITY DISORDER
     Dosage: 20 MG, QDF, ORAL; 40 MG/DAY, ORAL; 60 MG/DAY, ORAL; 80 MG/DAY, OAL
     Route: 048
  3. ADDERALL 10 [Suspect]
     Indication: ATTENTION DEFICIT/HYPERACTIVITY DISORDER
     Dosage: 20 MG, QDF, ORAL; 40 MG/DAY, ORAL; 60 MG/DAY, ORAL; 80 MG/DAY, OAL
     Route: 048
  4. PROZAC [Concomitant]

REACTIONS (14)
  - ABDOMINAL PAIN [None]
  - CARDIAC FAILURE CONGESTIVE [None]
  - CARDIOMYOPATHY [None]
  - CHEST DISCOMFORT [None]
  - DIARRHOEA [None]
  - HEART TRANSPLANT [None]
  - INTRACARDIAC THROMBUS [None]
  - IRRITABILITY [None]
  - JOINT SWELLING [None]
  - PERIPHERAL ARTERIAL OCCLUSIVE DISEASE [None]
  - PNEUMONIA [None]
  - PSYCHOMOTOR HYPERACTIVITY [None]
  - VIRAL INFECTION [None]
  - VOMITING [None]
